FAERS Safety Report 4792901-X (Version None)
Quarter: 2005Q4

REPORT INFORMATION
  Report Type: 
  Country: None (occurrence: None)
  Receive Date: 20051010
  Receipt Date: 20051003
  Transmission Date: 20060501
  Serious: Yes (Hospitalization)
  Sender: FDA-Public Use
  Company Number: FR-ROCHE-419631

PATIENT
  Age: 71 Year
  Sex: Female

DRUGS (6)
  1. ROCEPHIN [Suspect]
     Indication: BRONCHITIS
     Route: 030
     Dates: start: 20050808, end: 20050809
  2. RULID [Suspect]
     Indication: BRONCHITIS
     Route: 048
     Dates: start: 20050805, end: 20050808
  3. CLONAZEPAM [Concomitant]
     Route: 048
     Dates: start: 19900101
  4. URBANYL [Concomitant]
     Route: 048
     Dates: start: 19900101, end: 20050810
  5. MUCOMYST [Concomitant]
     Route: 048
     Dates: start: 20050805
  6. GARDENAL [Concomitant]
     Route: 048
     Dates: start: 19900101

REACTIONS (4)
  - ANAPHYLACTIC SHOCK [None]
  - HYPOTENSION [None]
  - RASH [None]
  - RASH PUSTULAR [None]
